FAERS Safety Report 9859583 (Version 1)
Quarter: 2014Q1

REPORT INFORMATION
  Report Type: Spontaneous
  Country: US (occurrence: US)
  Receive Date: 20140131
  Receipt Date: 20140131
  Transmission Date: 20141002
  Serious: Yes (Other)
  Sender: FDA-Public Use
  Company Number: US-009507513-1401USA013658

PATIENT
  Sex: Male

DRUGS (2)
  1. JANUVIA [Suspect]
     Dosage: UNK
     Route: 048
     Dates: start: 200911
  2. BYETTA [Suspect]
     Dosage: UNK
     Route: 065
     Dates: start: 2005, end: 200910

REACTIONS (1)
  - Pancreatic carcinoma [Unknown]
